FAERS Safety Report 16143024 (Version 1)
Quarter: 2019Q2

REPORT INFORMATION
  Report Type: Report from Study
  Country: US (occurrence: US)
  Receive Date: 20190401
  Receipt Date: 20190401
  Transmission Date: 20190711
  Serious: Yes (Other)
  Sender: FDA-Public Use
  Company Number: US-SA-2016SA071129

PATIENT
  Age: 76 Year
  Sex: Female

DRUGS (16)
  1. VANDETANIB. [Suspect]
     Active Substance: VANDETANIB
     Dosage: 100 MG,Q2H
     Route: 048
     Dates: start: 20111227
  2. FEXOFENADINE HYDROCHLORIDE. [Concomitant]
     Active Substance: FEXOFENADINE HYDROCHLORIDE
     Dosage: 180 MG,QD
     Route: 048
  3. NASONEX [Concomitant]
     Active Substance: MOMETASONE FUROATE
     Indication: MULTIPLE ALLERGIES
     Dosage: UNK UNK,UNK
     Route: 048
  4. COLCHICINE. [Concomitant]
     Active Substance: COLCHICINE
     Dosage: UNK UNK, UNK
  5. EPINEPHRINE. [Concomitant]
     Active Substance: EPINEPHRINE
     Dosage: UNK UNK,UNK
  6. VANDETANIB. [Suspect]
     Active Substance: VANDETANIB
     Dosage: 200 MG,QD
     Route: 048
  7. CEFALEXIN [Concomitant]
     Active Substance: CEPHALEXIN
     Dosage: UNK UNK,UNK
  8. ATROPINE. [Concomitant]
     Active Substance: ATROPINE
     Dosage: UNK UNK,UNK
     Route: 048
  9. MUCINEX D [Concomitant]
     Active Substance: GUAIFENESIN\PSEUDOEPHEDRINE HYDROCHLORIDE
     Indication: COUGH
     Dosage: UNK UNK,UNK
     Route: 048
  10. VANDETANIB. [Suspect]
     Active Substance: VANDETANIB
     Indication: THYROID CANCER
     Dosage: 100 MG,QD
     Route: 048
     Dates: start: 20111229
  11. VANDETANIB. [Suspect]
     Active Substance: VANDETANIB
     Dosage: 100 MG,QD
     Route: 048
  12. VANDETANIB. [Suspect]
     Active Substance: VANDETANIB
     Dosage: 100 MG,UNK
     Route: 048
     Dates: start: 20120110
  13. LEVOTHYROXINE SODIUM. [Concomitant]
     Active Substance: LEVOTHYROXINE SODIUM
     Indication: THYROID DISORDER
     Dosage: 112 UG,QD
     Route: 048
  14. ACETYLSALICYLIC ACID [Concomitant]
     Active Substance: ASPIRIN
     Dosage: 81 MG,QD
     Route: 048
  15. HYDROCODONE [Concomitant]
     Active Substance: HYDROCODONE
     Dosage: UNK UNK, UNK
  16. ATENOLOL. [Concomitant]
     Active Substance: ATENOLOL
     Indication: BLOOD PRESSURE ABNORMAL
     Dosage: 25 MG,QD
     Route: 048

REACTIONS (15)
  - Fatigue [Not Recovered/Not Resolved]
  - Depression [Unknown]
  - Glaucoma [Unknown]
  - Blood cholesterol increased [Unknown]
  - Dysarthria [Unknown]
  - Diarrhoea [Not Recovered/Not Resolved]
  - Electrocardiogram change [Unknown]
  - Anxiety [Unknown]
  - Diplopia [Unknown]
  - Palpitations [Unknown]
  - Nocturnal fear [Unknown]
  - Gout [Recovering/Resolving]
  - Rash [Recovering/Resolving]
  - Decreased appetite [Recovering/Resolving]
  - Weight decreased [Not Recovered/Not Resolved]

NARRATIVE: CASE EVENT DATE: 201604
